FAERS Safety Report 8893160 (Version 1)
Quarter: 2012Q4

REPORT INFORMATION
  Report Type: 
  Country: US (occurrence: US)
  Receive Date: 20121108
  Receipt Date: 20121108
  Transmission Date: 20130627
  Serious: Yes (Other)
  Sender: FDA-Public Use
  Company Number: US-AMGEN-USASP2012070191

PATIENT
  Age: 60 Year
  Sex: Female

DRUGS (1)
  1. ENBREL [Suspect]
     Indication: RHEUMATOID ARTHRITIS
     Dosage: 50 mg, qwk
     Dates: start: 20121031

REACTIONS (4)
  - Hallucination, olfactory [Recovered/Resolved]
  - Hallucination, auditory [Recovered/Resolved]
  - Presyncope [Recovered/Resolved]
  - Fatigue [Recovered/Resolved]
